FAERS Safety Report 9479708 (Version 1)
Quarter: 2013Q3

REPORT INFORMATION
  Report Type: Spontaneous
  Country: US (occurrence: US)
  Receive Date: 20130828
  Receipt Date: 20130828
  Transmission Date: 20140515
  Serious: Yes (Hospitalization, Other)
  Sender: FDA-Public Use
  Company Number: US-AMGEN-KDL035376

PATIENT
  Age: 41 Year
  Sex: Female

DRUGS (3)
  1. ENBREL [Suspect]
     Indication: SACROILIITIS
     Dosage: 25 MG, 2 TIMES/WK
     Route: 058
  2. METHYLPREDNISOLONE [Concomitant]
     Dosage: UNK UNK, UNK
     Dates: start: 20030120
  3. PREDNISONE [Concomitant]
     Dosage: 5 MG, QD
     Dates: start: 19930408

REACTIONS (2)
  - Central nervous system mass [Unknown]
  - Spinal pain [Unknown]
